FAERS Safety Report 24543590 (Version 1)
Quarter: 2024Q4

REPORT INFORMATION
  Report Type: Spontaneous
  Country: FR (occurrence: FR)
  Receive Date: 20241024
  Receipt Date: 20241024
  Transmission Date: 20250115
  Serious: Yes (Other)
  Sender: CELLTRION
  Company Number: FR-AMGEN-FRASP2024081698

PATIENT

DRUGS (3)
  1. BEVACIZUMAB [Suspect]
     Active Substance: BEVACIZUMAB
     Indication: Non-small cell lung cancer
     Dosage: 10 MILLIGRAM/KILOGRAM
     Route: 065
  2. PACLITAXEL [Concomitant]
     Active Substance: PACLITAXEL
     Indication: Non-small cell lung cancer
     Dosage: 80 MILLIGRAM/M^2
     Route: 065
  3. PACLITAXEL [Concomitant]
     Active Substance: PACLITAXEL
     Indication: Non-small cell lung cancer metastatic
     Dosage: 90 MILLIGRAM/M^2
     Route: 065

REACTIONS (6)
  - Non-small cell lung cancer metastatic [Unknown]
  - Nephrotic syndrome [Unknown]
  - Neuropathy peripheral [Unknown]
  - Adverse event [Unknown]
  - Therapy partial responder [Unknown]
  - Intentional product use issue [Unknown]
